FAERS Safety Report 6450128-X (Version None)
Quarter: 2009Q4

REPORT INFORMATION
  Report Type: 
  Country: None (occurrence: None)
  Receive Date: 20091120
  Receipt Date: 20091120
  Transmission Date: 20100525
  Serious: Yes (Hospitalization)
  Sender: FDA-Public Use
  Company Number: None

PATIENT
  Sex: Female
  Weight: 14.6 kg

DRUGS (4)
  1. CYCLOPHOSPHAMIDE [Suspect]
     Dosage: 1320 MG
     Dates: end: 20090922
  2. ETOPOSIDE [Suspect]
     Dosage: 300 MG
     Dates: end: 20090922
  3. G-CSF (FILGRASTIM, AMGEN) [Suspect]
     Dosage: 220 MCG
     Dates: end: 20090925
  4. METHOTREXATE [Suspect]
     Dosage: 12 MG
     Dates: end: 20090918

REACTIONS (12)
  - BLOOD ALBUMIN DECREASED [None]
  - BLOOD CALCIUM DECREASED [None]
  - BLOOD CREATININE DECREASED [None]
  - BLOOD SODIUM DECREASED [None]
  - HAEMOGLOBIN DECREASED [None]
  - HEART RATE INCREASED [None]
  - NEUTROPENIA [None]
  - PLATELET COUNT DECREASED [None]
  - PROTEIN TOTAL DECREASED [None]
  - PYREXIA [None]
  - RESPIRATORY RATE DECREASED [None]
  - WHITE BLOOD CELL COUNT DECREASED [None]
